FAERS Safety Report 8012020-9 (Version None)
Quarter: 2011Q4

REPORT INFORMATION
  Report Type: 
  Country: None (occurrence: None)
  Receive Date: 20111228
  Receipt Date: 20111216
  Transmission Date: 20120403
  Serious: Yes (Hospitalization)
  Sender: FDA-Public Use
  Company Number: FR-GLAXOSMITHKLINE-B0769834A

PATIENT
  Age: 68 Year
  Sex: Male

DRUGS (2)
  1. ARIXTRA [Suspect]
     Indication: PRODUCT USED FOR UNKNOWN INDICATION
     Route: 058
     Dates: end: 20100219
  2. PLAVIX [Suspect]
     Route: 048
     Dates: end: 20100219

REACTIONS (1)
  - SUBDURAL HAEMATOMA [None]
